FAERS Safety Report 9587013 (Version 1)
Quarter: 2013Q4

REPORT INFORMATION
  Report Type: Spontaneous
  Country: US (occurrence: None)
  Receive Date: 20131002
  Receipt Date: 20131002
  Transmission Date: 20140711
  Serious: Yes (Hospitalization)
  Sender: FDA-Public Use
  Company Number: DL2013-0701

PATIENT
  Age: 33 Year
  Sex: Female

DRUGS (3)
  1. MIFEPRISTONE TABLETS, 200 MG [Suspect]
     Indication: ABORTION INDUCED
     Route: 048
     Dates: start: 20130715
  2. MISOPROSTOL TABLETS [Suspect]
     Dates: start: 20130716
  3. LEVOFLOXACIN [Concomitant]

REACTIONS (3)
  - Nausea [None]
  - Haemorrhage [None]
  - Anaemia [None]
